FAERS Safety Report 19257926 (Version 2)
Quarter: 2021Q2

REPORT INFORMATION
  Report Type: Other
  Country: CA (occurrence: CA)
  Receive Date: 20210514
  Receipt Date: 20210604
  Transmission Date: 20210717
  Serious: Yes (Life-Threatening, Hospitalization, Other)
  Sender: FDA-Public Use
  Company Number: CA-VALIDUS PHARMACEUTICALS LLC-CA-2021VAL001195

PATIENT
  Sex: Male

DRUGS (7)
  1. FENTANYL. [Suspect]
     Active Substance: FENTANYL
     Indication: PRODUCT USED FOR UNKNOWN INDICATION
     Dosage: UNK
     Route: 065
  2. HYDROMORPHONE [Suspect]
     Active Substance: HYDROMORPHONE
     Indication: PRODUCT USED FOR UNKNOWN INDICATION
     Dosage: UNK
     Route: 065
  3. DEMEROL [Suspect]
     Active Substance: MEPERIDINE HYDROCHLORIDE
     Indication: PRODUCT USED FOR UNKNOWN INDICATION
     Dosage: UNK
     Route: 065
  4. LOPERAMIDE HYDROCHLORIDE. [Suspect]
     Active Substance: LOPERAMIDE HYDROCHLORIDE
     Indication: PRODUCT USED FOR UNKNOWN INDICATION
     Dosage: UNK
     Route: 065
  5. HUMIRA [Suspect]
     Active Substance: ADALIMUMAB
     Indication: PRODUCT USED FOR UNKNOWN INDICATION
     Dosage: UNK
     Route: 065
  6. GABAPENTIN. [Suspect]
     Active Substance: GABAPENTIN
     Indication: PRODUCT USED FOR UNKNOWN INDICATION
     Dosage: UNK
     Route: 065
  7. CIPROFLOXACIN LACTATE [Suspect]
     Active Substance: CIPROFLOXACIN LACTATE
     Indication: PRODUCT USED FOR UNKNOWN INDICATION
     Dosage: UNK
     Route: 065

REACTIONS (80)
  - Carditis [Unknown]
  - Mucosal atrophy [Unknown]
  - Cachexia [Unknown]
  - Dehydration [Unknown]
  - Paraesthesia [Unknown]
  - Gastrointestinal mucosa hyperaemia [Unknown]
  - Duodenal ulcer [Unknown]
  - Haematemesis [Unknown]
  - Faeces discoloured [Unknown]
  - Hiatus hernia [Unknown]
  - Ulcer [Unknown]
  - Oesophageal disorder [Unknown]
  - Motor dysfunction [Unknown]
  - Swelling [Unknown]
  - Inflammatory bowel disease [Unknown]
  - Discomfort [Unknown]
  - Crohn^s disease [Unknown]
  - Proctitis [Unknown]
  - Peripheral ischaemia [Unknown]
  - Large intestinal stenosis [Unknown]
  - Neoplasm malignant [Unknown]
  - Oesophagitis ulcerative [Unknown]
  - Gastrointestinal disorder [Unknown]
  - Haemorrhoids thrombosed [Unknown]
  - Bone infarction [Unknown]
  - Mucosal disorder [Unknown]
  - Haemoglobin decreased [Unknown]
  - Blood urea increased [Unknown]
  - Iron deficiency [Unknown]
  - Confusional state [Unknown]
  - Clostridium difficile infection [Unknown]
  - Sepsis [Unknown]
  - Peripheral vascular disorder [Unknown]
  - Gastrooesophageal reflux disease [Unknown]
  - Chest pain [Unknown]
  - Arthralgia [Unknown]
  - Road traffic accident [Unknown]
  - Asthenia [Unknown]
  - Vomiting [Unknown]
  - Osteonecrosis [Unknown]
  - Stenosis [Unknown]
  - Pseudopolyp [Unknown]
  - Dysplasia [Unknown]
  - Mobility decreased [Unknown]
  - Metabolic disorder [Unknown]
  - Unevaluable event [Unknown]
  - Osteomyelitis [Unknown]
  - Nodule [Unknown]
  - Gait disturbance [Unknown]
  - Malnutrition [Unknown]
  - Ileal perforation [Unknown]
  - Mucous stools [Unknown]
  - Colitis [Unknown]
  - Rectal ulcer [Unknown]
  - Scar [Unknown]
  - Serum sickness [Unknown]
  - Enteritis [Unknown]
  - Panic attack [Unknown]
  - Insomnia [Unknown]
  - Anaemia [Unknown]
  - Infection [Unknown]
  - Perirectal abscess [Unknown]
  - Gastrointestinal tract irritation [Unknown]
  - Nausea [Unknown]
  - Duodenitis [Unknown]
  - Gangrene [Unknown]
  - Gastrointestinal haemorrhage [Unknown]
  - Facial wasting [Unknown]
  - Blood albumin abnormal [Unknown]
  - Oedema mucosal [Unknown]
  - Thrombosis [Unknown]
  - Major depression [Unknown]
  - Malaise [Unknown]
  - Blood lactic acid increased [Unknown]
  - Duodenal obstruction [Unknown]
  - Peripheral artery thrombosis [Unknown]
  - Starvation [Unknown]
  - Pain [Unknown]
  - Pancreatitis [Unknown]
  - Abnormal behaviour [Unknown]
